FAERS Safety Report 12617864 (Version 2)
Quarter: 2016Q3

REPORT INFORMATION
  Report Type: Spontaneous
  Country: US (occurrence: US)
  Receive Date: 20160803
  Receipt Date: 20160819
  Transmission Date: 20161109
  Serious: Yes (Other)
  Sender: FDA-Public Use
  Company Number: US-PFIZER INC-2016354722

PATIENT
  Age: 64 Year
  Sex: Male

DRUGS (1)
  1. BIVALIRUDIN. [Suspect]
     Active Substance: BIVALIRUDIN
     Indication: INTERVENTIONAL PROCEDURE
     Dosage: BOLUS OF 13.5 ML, DRIP AT 31.5 MG/KG/HR
     Dates: start: 20160623, end: 20160623

REACTIONS (3)
  - Drug ineffective [Unknown]
  - Thrombosis [Recovering/Resolving]
  - Product use issue [Unknown]

NARRATIVE: CASE EVENT DATE: 20160623
